FAERS Safety Report 11584227 (Version 1)
Quarter: 2015Q4

REPORT INFORMATION
  Report Type: Spontaneous
  Country: US (occurrence: US)
  Receive Date: 20151001
  Receipt Date: 20151001
  Transmission Date: 20160304
  Serious: No
  Sender: FDA-Public Use
  Company Number: US-ROCHE-664373

PATIENT
  Age: 64 Year
  Sex: Male

DRUGS (2)
  1. COPEGUS [Suspect]
     Active Substance: RIBAVIRIN
     Indication: HEPATITIS C
     Dosage: DIVIDED DOSES
     Route: 065
  2. PEGASYS [Suspect]
     Active Substance: PEGINTERFERON ALFA-2A
     Indication: HEPATITIS C
     Dosage: FORM: PRE-FILLED SYRINGE
     Route: 065

REACTIONS (7)
  - Dry mouth [Unknown]
  - Fatigue [Unknown]
  - Oropharyngeal pain [Recovered/Resolved]
  - Body temperature increased [Recovered/Resolved]
  - Arthralgia [Unknown]
  - Joint swelling [Not Recovered/Not Resolved]
  - Rhinorrhoea [Recovered/Resolved]

NARRATIVE: CASE EVENT DATE: 20091014
